FAERS Safety Report 8212354-9 (Version None)
Quarter: 2012Q1

REPORT INFORMATION
  Report Type: 
  Country: None (occurrence: None)
  Receive Date: 20120315
  Receipt Date: 20120308
  Transmission Date: 20120608
  Serious: Yes (Hospitalization)
  Sender: FDA-Public Use
  Company Number: DE-ROCHE-1045699

PATIENT
  Age: 75 Year
  Sex: Male
  Weight: 88 kg

DRUGS (3)
  1. TELAPREVIR [Suspect]
     Indication: HEPATITIS C
     Dosage: LAST DOSE PRIOR TO SAE 05/JAN/2012
     Route: 048
     Dates: start: 20111011
  2. COPEGUS [Suspect]
     Indication: HEPATITIS C
     Route: 048
     Dates: start: 20111011
  3. PEGINTERFERON ALFA-2A [Suspect]
     Indication: HEPATITIS C
     Route: 058
     Dates: start: 20111011

REACTIONS (8)
  - PYREXIA [None]
  - MYELODYSPLASTIC SYNDROME [None]
  - PROSTATITIS [None]
  - THROMBOCYTOPENIA [None]
  - LEUKOPENIA [None]
  - URINARY TRACT INFECTION [None]
  - ANAEMIA [None]
  - SEPSIS [None]
